FAERS Safety Report 5206638-6 (Version None)
Quarter: 2006Q4

REPORT INFORMATION
  Report Type: 
  Country: None (occurrence: None)
  Receive Date: 20061026
  Receipt Date: 20060929
  Transmission Date: 20070319
  Serious: No
  Sender: FDA-Public Use
  Company Number: 2006084193

PATIENT
  Age: 74 Year
  Sex: Male

DRUGS (4)
  1. LYRICA [Suspect]
     Indication: SCIATICA
     Dosage: 50 MG (50 MG, DAILY AT NOON)
     Dates: start: 20060701
  2. PERCOCET [Suspect]
     Indication: SCIATICA
  3. EXCEDRIN (ACETYLSALICYLIC ACID, CAFFEINE, PARACETAMOL, SALICYLAMIDE) [Concomitant]
  4. ALLOPURINOL [Concomitant]

REACTIONS (6)
  - ASTHENIA [None]
  - CONSTIPATION [None]
  - DRUG INEFFECTIVE [None]
  - DRUG INTERACTION [None]
  - PAIN [None]
  - SOMNOLENCE [None]
